FAERS Safety Report 15857301 (Version 1)
Quarter: 2019Q1

REPORT INFORMATION
  Report Type: Report from Study
  Country: US (occurrence: US)
  Receive Date: 20190123
  Receipt Date: 20190123
  Transmission Date: 20190417
  Serious: Yes (Other)
  Sender: FDA-Public Use
  Company Number: US-AMGEN INC.-USASL2019009378

PATIENT
  Age: 54 Year
  Sex: Female

DRUGS (3)
  1. RELPAX [Concomitant]
     Active Substance: ELETRIPTAN HYDROBROMIDE
     Dosage: UNK
  2. AIMOVIG [Suspect]
     Active Substance: ERENUMAB-AOOE
     Indication: MIGRAINE
     Dosage: 70 MG, QMO
     Route: 058
     Dates: start: 20180808
  3. AIMOVIG [Suspect]
     Active Substance: ERENUMAB-AOOE
     Dosage: 140 MG, QMO
     Route: 058

REACTIONS (5)
  - Anxiety [Recovering/Resolving]
  - Depression [Recovering/Resolving]
  - Migraine [Unknown]
  - Presyncope [Unknown]
  - Fatigue [Unknown]

NARRATIVE: CASE EVENT DATE: 2018
